FAERS Safety Report 20940182 (Version 1)
Quarter: 2022Q2

REPORT INFORMATION
  Report Type: Spontaneous
  Country: US (occurrence: US)
  Receive Date: 20220609
  Receipt Date: 20220609
  Transmission Date: 20220721
  Serious: Yes (Other)
  Sender: FDA-Public Use
  Company Number: US-PFIZER INC-202200804198

PATIENT
  Age: 61 Year
  Sex: Female
  Weight: 73.94 kg

DRUGS (5)
  1. PAXLOVID [Suspect]
     Active Substance: NIRMATRELVIR\RITONAVIR
     Indication: COVID-19
     Dosage: PF-07321332 300 MG/RITONAVIR 100 MG; 2X/DAY
     Route: 048
     Dates: start: 20220603
  2. ALLEGRA [Concomitant]
     Active Substance: FEXOFENADINE HYDROCHLORIDE
     Indication: Sinusitis
     Dosage: 60 MG, 2X/DAY
     Route: 048
  3. ALLEGRA [Concomitant]
     Active Substance: FEXOFENADINE HYDROCHLORIDE
     Indication: Hypersensitivity
  4. GUAIFENESIN [Concomitant]
     Active Substance: GUAIFENESIN
     Indication: Sinus congestion
     Dosage: 400 MG, AS NEEDED (EVERY 4 HOURS)
  5. SUDAFED PE CONGESTION [Concomitant]
     Active Substance: PHENYLEPHRINE HYDROCHLORIDE
     Indication: Sinus congestion
     Dosage: 10 MG, AS NEEDED (EVERY 4 HOURS)
     Route: 048

REACTIONS (10)
  - Dysgeusia [Not Recovered/Not Resolved]
  - Diarrhoea [Not Recovered/Not Resolved]
  - Myalgia [Not Recovered/Not Resolved]
  - Hypoaesthesia oral [Recovering/Resolving]
  - Hypoaesthesia [Recovering/Resolving]
  - Feeling hot [Recovering/Resolving]
  - Paraesthesia oral [Recovering/Resolving]
  - Headache [Unknown]
  - Nausea [Unknown]
  - Malaise [Unknown]

NARRATIVE: CASE EVENT DATE: 20220601
